FAERS Safety Report 9885244 (Version 4)
Quarter: 2014Q2

REPORT INFORMATION
  Report Type: Spontaneous
  Country: US (occurrence: US)
  Receive Date: 20140210
  Receipt Date: 20140402
  Transmission Date: 20141212
  Serious: Yes (Other)
  Sender: FDA-Public Use
  Company Number: US-PFIZER INC-2014034733

PATIENT
  Age: 63 Year
  Sex: Male
  Weight: 90.7 kg

DRUGS (5)
  1. GLUCOTROL [Suspect]
     Indication: BLOOD GLUCOSE ABNORMAL
     Dosage: UNK
  2. GLUCOTROL XL [Suspect]
     Indication: BLOOD GLUCOSE ABNORMAL
     Dosage: UNK
  3. GLUCOTROL XL [Suspect]
     Indication: TYPE 2 DIABETES MELLITUS
     Dosage: 20 MG (10 MG 2 TABLETS) EVERY MORNING
     Route: 048
     Dates: start: 20140120, end: 20140129
  4. GLUCOTROL XL [Suspect]
     Indication: DIABETES MELLITUS
     Dosage: 20 MG, DAILY (TWO TABLETS OF 10MG)
     Route: 048
     Dates: start: 20140128
  5. GLIPIZIDE XL [Suspect]
     Indication: TYPE 2 DIABETES MELLITUS
     Dosage: 20 MG, DAILY (TWO TABLETS OF 10MG)
     Route: 048
     Dates: start: 201308, end: 20140127

REACTIONS (2)
  - Drug ineffective [Unknown]
  - Product physical issue [Unknown]
